FAERS Safety Report 19215484 (Version 9)
Quarter: 2022Q4

REPORT INFORMATION
  Report Type: Report from Study
  Country: GB (occurrence: GB)
  Receive Date: 20210505
  Receipt Date: 20221211
  Transmission Date: 20230112
  Serious: Yes (Hospitalization, Other)
  Sender: FDA-Public Use
  Company Number: NVSC2021GB097957

PATIENT
  Age: 16 Year
  Sex: Male
  Weight: 86.1 kg

DRUGS (17)
  1. TISAGENLECLEUCEL [Suspect]
     Active Substance: TISAGENLECLEUCEL
     Indication: B-cell lymphoma
     Dosage: 0.4X10E6 CELLS/KG
     Route: 042
     Dates: start: 20210407
  2. POSACONAZOLE [Concomitant]
     Active Substance: POSACONAZOLE
     Indication: Fungal infection
     Dosage: UNK
     Route: 065
     Dates: start: 20210417, end: 20210504
  3. COTRIMOXAZOLE [Concomitant]
     Active Substance: SULFAMETHOXAZOLE\TRIMETHOPRIM
     Indication: Prophylaxis
     Dosage: UNK
     Route: 065
     Dates: start: 202003, end: 20210502
  4. ONDANSETRON [Concomitant]
     Active Substance: ONDANSETRON
     Indication: Prophylaxis of nausea and vomiting
     Dosage: UNK
     Route: 065
     Dates: start: 20201219
  5. LORATADINE [Concomitant]
     Active Substance: LORATADINE
     Indication: Supportive care
     Dosage: UNK
     Route: 065
     Dates: start: 20201207
  6. CYCLIZINE [Concomitant]
     Active Substance: CYCLIZINE
     Indication: Prophylaxis of nausea and vomiting
     Dosage: UNK
     Route: 065
     Dates: start: 20201220
  7. METOCLOPRAMIDE [Concomitant]
     Active Substance: METOCLOPRAMIDE
     Indication: Antiemetic supportive care
     Dosage: UNK
     Route: 065
     Dates: start: 20201220
  8. MORPHINE [Concomitant]
     Active Substance: MORPHINE
     Indication: Analgesic therapy
     Dosage: UNK
     Route: 065
     Dates: start: 202003
  9. FLUTICASONE FUROATE [Concomitant]
     Active Substance: FLUTICASONE FUROATE
     Indication: General physical condition
     Dosage: UNK
     Route: 065
     Dates: start: 20210408
  10. CHOLECALCIFEROL [Concomitant]
     Active Substance: CHOLECALCIFEROL
     Indication: General physical condition
     Dosage: UNK
     Route: 065
     Dates: start: 20210408
  11. TOCILIZUMAB [Concomitant]
     Active Substance: TOCILIZUMAB
     Indication: Cytokine release syndrome
     Route: 065
  12. TOCILIZUMAB [Concomitant]
     Active Substance: TOCILIZUMAB
     Dosage: UNK
     Route: 065
  13. ACYCLOVIR [Concomitant]
     Active Substance: ACYCLOVIR
     Indication: General physical condition
     Dosage: UNK
     Route: 065
     Dates: start: 20210406, end: 20210610
  14. CIPROFLOXACIN [Concomitant]
     Active Substance: CIPROFLOXACIN
     Indication: Infection prophylaxis
     Dosage: UNK
     Route: 065
     Dates: start: 20210331, end: 20210504
  15. VITAMIN K1 [Concomitant]
     Active Substance: PHYTONADIONE
     Indication: Haemorrhage prophylaxis
     Dosage: UNK
     Route: 065
     Dates: start: 20210402
  16. DIPROBASE OINTMENT [Concomitant]
     Indication: Rash maculo-papular
     Dosage: UNK
     Route: 065
     Dates: start: 20210412, end: 20210623
  17. BETAMETHASONE [Concomitant]
     Active Substance: BETAMETHASONE
     Indication: Rash maculo-papular
     Dosage: UNK
     Route: 065
     Dates: start: 20210414, end: 20210423

REACTIONS (1)
  - Vision blurred [Recovered/Resolved]

NARRATIVE: CASE EVENT DATE: 20210428
